FAERS Safety Report 24180544 (Version 1)
Quarter: 2024Q3

REPORT INFORMATION
  Report Type: Spontaneous
  Country: CA (occurrence: None)
  Receive Date: 20240806
  Receipt Date: 20240806
  Transmission Date: 20241017
  Serious: Yes (Other)
  Sender: ASTRAZENECA
  Company Number: 2020SF26975

PATIENT
  Age: 66 Year
  Sex: Female

DRUGS (7)
  1. BUDESONIDE [Suspect]
     Active Substance: BUDESONIDE
     Indication: Product used for unknown indication
     Route: 055
  2. BUDESONIDE [Suspect]
     Active Substance: BUDESONIDE
     Indication: Product used for unknown indication
     Route: 055
  3. BREO ELLIPTA [Suspect]
     Active Substance: FLUTICASONE FUROATE\VILANTEROL TRIFENATATE
     Indication: Asthma
     Dosage: 1 DF 1 EVERY 1 DAYS
     Route: 055
  4. FLUTICASONE PROPIONATE\SALMETEROL XINAFOATE [Suspect]
     Active Substance: FLUTICASONE PROPIONATE\SALMETEROL XINAFOATE
     Indication: Asthma
     Dosage: 1 DF 1 EVERY 1 DAYS
     Route: 065
  5. NUCALA [Suspect]
     Active Substance: MEPOLIZUMAB
     Indication: Asthma
     Dosage: 100 MG UNKNOWN
     Route: 042
  6. VENTOLIN [Suspect]
     Active Substance: ALBUTEROL SULFATE
     Indication: Product used for unknown indication
     Route: 065
  7. SODIUM BICARBONATE\SODIUM CHLORIDE [Suspect]
     Active Substance: SODIUM BICARBONATE\SODIUM CHLORIDE
     Indication: Product used for unknown indication
     Route: 065

REACTIONS (26)
  - Abdominal pain [Unknown]
  - Asthma [Recovered/Resolved]
  - Bacterial infection [Unknown]
  - Full blood count abnormal [Recovered/Resolved]
  - Bronchitis [Recovered/Resolved]
  - Condition aggravated [Recovered/Resolved]
  - Disease recurrence [Unknown]
  - Dyspnoea [Recovered/Resolved]
  - Dyspnoea exertional [Recovering/Resolving]
  - Eosinophilic granulomatosis with polyangiitis [Recovered/Resolved]
  - Fatigue [Recovered/Resolved]
  - Nasal congestion [Recovering/Resolving]
  - Nasopharyngitis [Recovered/Resolved]
  - Nausea [Recovered/Resolved]
  - Obstructive airways disorder [Unknown]
  - Pain in extremity [Recovered/Resolved]
  - Pleuritic pain [Recovering/Resolving]
  - Rales [Unknown]
  - Rhinitis [Unknown]
  - Sinus congestion [Unknown]
  - Sinusitis [Unknown]
  - Skin discolouration [Unknown]
  - Viral infection [Recovered/Resolved]
  - Weight decreased [Recovered/Resolved]
  - Wheezing [Unknown]
  - Cough [Recovered/Resolved]
